FAERS Safety Report 24132079 (Version 1)
Quarter: 2024Q3

REPORT INFORMATION
  Report Type: Spontaneous
  Country: GB (occurrence: GB)
  Receive Date: 20240724
  Receipt Date: 20240724
  Transmission Date: 20241017
  Serious: Yes (Other)
  Sender: PFIZER
  Company Number: GB-MHRA-WEBRADR-202407191549256080-ZRBJH

PATIENT
  Age: 55 Year
  Sex: Female
  Weight: 94 kg

DRUGS (1)
  1. METHYLPREDNISOLONE [Suspect]
     Active Substance: METHYLPREDNISOLONE
     Indication: Inflammation masked
     Dosage: 5 MG
     Route: 048
     Dates: start: 20240712, end: 20240716

REACTIONS (7)
  - Psychotic disorder [Recovered/Resolved with Sequelae]
  - Vaginal haemorrhage [Recovering/Resolving]
  - Gastritis [Recovered/Resolved with Sequelae]
  - Muscle spasms [Unknown]
  - Sleep deficit [Recovered/Resolved with Sequelae]
  - Anxiety [Unknown]
  - Discharge [Unknown]

NARRATIVE: CASE EVENT DATE: 20240713
